FAERS Safety Report 9630146 (Version 2)
Quarter: 2013Q4

REPORT INFORMATION
  Report Type: Report from Study
  Country: BR (occurrence: BR)
  Receive Date: 20131017
  Receipt Date: 20131017
  Transmission Date: 20140711
  Serious: Yes (Other)
  Sender: FDA-Public Use
  Company Number: PHHY2013BR095572

PATIENT
  Sex: Female

DRUGS (4)
  1. DIOVAN HCT [Suspect]
     Indication: HYPERTENSION
     Dosage: 1 TABLET (80 MG VALS/ 12.5 MG HYDRO) DAILY
     Route: 048
  2. GLIFAGE [Suspect]
     Indication: BLOOD GLUCOSE ABNORMAL
     Dosage: 2 TABLETS (500 MG), AT NIGHT
     Route: 048
  3. SIMVASTATIN [Concomitant]
     Indication: BLOOD CHOLESTEROL
     Dosage: 1 TABLET (20 MG), DAILY
     Route: 048
  4. VENALOT [Concomitant]
     Indication: ANGIOPATHY
     Dosage: 2 TABLETS (15 MG), DAILY
     Route: 048

REACTIONS (5)
  - Diabetes mellitus [Not Recovered/Not Resolved]
  - Blood glucose increased [Recovered/Resolved]
  - Dysphonia [Recovered/Resolved]
  - Viral infection [Not Recovered/Not Resolved]
  - Influenza [Not Recovered/Not Resolved]
